FAERS Safety Report 8062488-7 (Version None)
Quarter: 2012Q1

REPORT INFORMATION
  Report Type: 
  Country: None (occurrence: None)
  Receive Date: 20120113
  Receipt Date: 20120104
  Transmission Date: 20120608
  Serious: Yes (Death)
  Sender: FDA-Public Use
  Company Number: 2012MA000247

PATIENT
  Age: 47 Year
  Sex: Male

DRUGS (6)
  1. DIAZEPAM [Concomitant]
  2. CANNABIS [Concomitant]
  3. TRAMADOL HYDROCHLORIDE [Suspect]
     Indication: BACK PAIN
     Dosage: QID
  4. DOTHIEPIN HYDROCHLORIDE [Concomitant]
  5. PROMAZINE HYDROCHLORIDE [Concomitant]
  6. PAREGORIC LIQUID USP (ALPHARMA) (PAREGORIC) [Suspect]
     Indication: BACK PAIN
     Dosage: 30 MG;TID

REACTIONS (3)
  - TOXICITY TO VARIOUS AGENTS [None]
  - ACCIDENTAL OVERDOSE [None]
  - BRONCHOPNEUMONIA [None]
